FAERS Safety Report 6268052-4 (Version None)
Quarter: 2009Q3

REPORT INFORMATION
  Report Type: 
  Country: None (occurrence: None)
  Receive Date: 20090713
  Receipt Date: 20090703
  Transmission Date: 20100115
  Serious: Yes (Life-Threatening)
  Sender: FDA-Public Use
  Company Number: 2008-185615-NL

PATIENT
  Age: 20 Year
  Sex: Female

DRUGS (1)
  1. ETONOGESTREL [Suspect]
     Indication: CONTRACEPTION
     Dosage: DF
     Dates: start: 20050225, end: 20080715

REACTIONS (1)
  - ISCHAEMIC CEREBRAL INFARCTION [None]
